FAERS Safety Report 13728365 (Version 2)
Quarter: 2017Q3

REPORT INFORMATION
  Report Type: Spontaneous
  Country: US (occurrence: US)
  Receive Date: 20170707
  Receipt Date: 20170922
  Transmission Date: 20171127
  Serious: Yes (Hospitalization)
  Sender: FDA-Public Use
  Company Number: US-JNJFOC-20170625480

PATIENT
  Age: 76 Year
  Sex: Male

DRUGS (8)
  1. XARELTO [Suspect]
     Active Substance: RIVAROXABAN
     Indication: PROTEIN C DEFICIENCY
     Route: 048
     Dates: start: 20151216, end: 20160723
  2. XARELTO [Suspect]
     Active Substance: RIVAROXABAN
     Indication: DEEP VEIN THROMBOSIS
     Route: 048
     Dates: start: 20151216, end: 20160723
  3. XARELTO [Suspect]
     Active Substance: RIVAROXABAN
     Indication: PROTEIN C DEFICIENCY
     Route: 048
     Dates: start: 20131005, end: 20141207
  4. XARELTO [Suspect]
     Active Substance: RIVAROXABAN
     Indication: PROTEIN C DEFICIENCY
     Route: 048
     Dates: start: 20141208, end: 20150305
  5. XARELTO [Suspect]
     Active Substance: RIVAROXABAN
     Indication: PROTEIN C DEFICIENCY
     Route: 048
     Dates: start: 20150306, end: 20151215
  6. XARELTO [Suspect]
     Active Substance: RIVAROXABAN
     Indication: DEEP VEIN THROMBOSIS
     Route: 048
     Dates: start: 20131005, end: 20141207
  7. XARELTO [Suspect]
     Active Substance: RIVAROXABAN
     Indication: DEEP VEIN THROMBOSIS
     Route: 048
     Dates: start: 20150306, end: 20151215
  8. XARELTO [Suspect]
     Active Substance: RIVAROXABAN
     Indication: DEEP VEIN THROMBOSIS
     Route: 048
     Dates: start: 20141208, end: 20150305

REACTIONS (2)
  - Gastrointestinal haemorrhage [Recovered/Resolved]
  - Acute kidney injury [Recovering/Resolving]

NARRATIVE: CASE EVENT DATE: 201607
